FAERS Safety Report 24852748 (Version 1)
Quarter: 2025Q1

REPORT INFORMATION
  Report Type: Spontaneous
  Country: GB (occurrence: GB)
  Receive Date: 20250116
  Receipt Date: 20250116
  Transmission Date: 20250408
  Serious: Yes (Other)
  Sender: B BRAUN
  Company Number: GB-B.Braun Medical Inc.-2169203

PATIENT
  Age: 49 Year
  Sex: Female

DRUGS (1)
  1. METRONIDAZOLE [Suspect]
     Active Substance: METRONIDAZOLE
     Indication: Tooth abscess
     Dates: start: 20241231

REACTIONS (6)
  - Wheezing [Unknown]
  - Off label use [Unknown]
  - Pharyngeal paraesthesia [Unknown]
  - Cough [Unknown]
  - Sneezing [Unknown]
  - Epistaxis [Unknown]
